FAERS Safety Report 19895265 (Version 1)
Quarter: 2021Q3

REPORT INFORMATION
  Report Type: Spontaneous
  Country: US (occurrence: US)
  Receive Date: 20210929
  Receipt Date: 20210929
  Transmission Date: 20211014
  Serious: Yes (Hospitalization)
  Sender: FDA-Public Use
  Company Number: None

PATIENT
  Age: 65 Year
  Sex: Male
  Weight: 164 kg

DRUGS (3)
  1. AMOXICILLIN (AMOXICILLIN 500MG CAP) [Suspect]
     Active Substance: AMOXICILLIN
     Indication: HYPERTENSION
     Route: 048
     Dates: start: 20210908, end: 20210910
  2. HYDROCHLOROTHIAZIDE/LISINOPRIL (HYDROCHLOROTHIAZIDE 25MG/LISINOPRIL 20 [Suspect]
     Active Substance: HYDROCHLOROTHIAZIDE\LISINOPRIL
     Indication: TONSILLITIS
     Dosage: ?          OTHER DOSE:25/20 MG;?
     Route: 048
     Dates: start: 20100624, end: 20210910
  3. HYDROCHLOROTHIAZIDE/LISINOPRIL (HYDROCHLOROTHIAZIDE 25MG/LISINOPRIL 20 [Suspect]
     Active Substance: HYDROCHLOROTHIAZIDE\LISINOPRIL
     Indication: PHARYNGITIS
     Dosage: ?          OTHER DOSE:25/20 MG;?
     Route: 048
     Dates: start: 20100624, end: 20210910

REACTIONS (1)
  - Angioedema [None]

NARRATIVE: CASE EVENT DATE: 20210910
